FAERS Safety Report 23604721 (Version 1)
Quarter: 2024Q1

REPORT INFORMATION
  Report Type: Spontaneous
  Country: US (occurrence: US)
  Receive Date: 20240307
  Receipt Date: 20240307
  Transmission Date: 20240410
  Serious: Yes (Disabling, Other)
  Sender: FDA-Public Use
  Company Number: US-IMMUNOGEN, INC.-US-IMGN-23-00691

PATIENT

DRUGS (2)
  1. ELAHERE [Suspect]
     Active Substance: MIRVETUXIMAB SORAVTANSINE-GYNX
     Indication: Product used for unknown indication
     Dosage: 2 CYCLES UNTIL THE EVENT
     Route: 065
     Dates: end: 20231116
  2. ELAHERE [Suspect]
     Active Substance: MIRVETUXIMAB SORAVTANSINE-GYNX
     Dosage: 3RD CYCLE
     Route: 065
     Dates: start: 20231130

REACTIONS (1)
  - Corneal toxicity [Recovering/Resolving]

NARRATIVE: CASE EVENT DATE: 20231101
